FAERS Safety Report 26100910 (Version 1)
Quarter: 2025Q4

REPORT INFORMATION
  Report Type: Spontaneous
  Country: JP (occurrence: JP)
  Receive Date: 20251128
  Receipt Date: 20251128
  Transmission Date: 20260117
  Serious: Yes (Other)
  Sender: ROCHE
  Company Number: JP-CHUGAI-2025038117

PATIENT
  Age: 3 Decade
  Sex: Male

DRUGS (1)
  1. TECENTRIQ [Suspect]
     Active Substance: ATEZOLIZUMAB
     Indication: Alveolar soft part sarcoma
     Dosage: UNK
     Route: 042

REACTIONS (1)
  - Pancreatitis [Recovering/Resolving]
